FAERS Safety Report 11835568 (Version 1)
Quarter: 2015Q4

REPORT INFORMATION
  Report Type: Spontaneous
  Country: US (occurrence: None)
  Receive Date: 20151214
  Receipt Date: 20151214
  Transmission Date: 20160305
  Serious: No
  Sender: FDA-Public Use
  Company Number: None

PATIENT
  Age: 33 Year
  Sex: Female
  Weight: 80.74 kg

DRUGS (8)
  1. QVAR [Concomitant]
     Active Substance: BECLOMETHASONE DIPROPIONATE
  2. FROVA [Concomitant]
     Active Substance: FROVATRIPTAN SUCCINATE
  3. BRUPROPION [Concomitant]
  4. COMBIVENT RESPIMAT [Suspect]
     Active Substance: ALBUTEROL SULFATE\IPRATROPIUM BROMIDE
     Indication: ASTHMA
     Route: 055
     Dates: start: 20150910, end: 20151212
  5. MULTI WOMEN^S VITAMIN [Concomitant]
  6. D3 [Concomitant]
     Active Substance: 25-HYDROXYCHOLECALCIFEROL, 5-TRANS-
  7. GILDESS FE [Concomitant]
     Active Substance: ETHINYL ESTRADIOL\NORETHINDRONE
  8. ZONIDAMIDE [Concomitant]

REACTIONS (2)
  - Device malfunction [None]
  - Pain of skin [None]

NARRATIVE: CASE EVENT DATE: 20151212
